FAERS Safety Report 11198932 (Version 2)
Quarter: 2015Q2

REPORT INFORMATION
  Report Type: Spontaneous
  Country: GB (occurrence: None)
  Receive Date: 20150616
  Receipt Date: 20150626
  Transmission Date: 20150821
  Serious: Yes (Hospitalization, Other)
  Sender: FDA-Public Use
  Company Number: GB2015GSK082475

PATIENT
  Age: 56 Year
  Sex: Male

DRUGS (2)
  1. VIRAMUNE (NEVIRAPINE) [Concomitant]
  2. KIVEXA [Suspect]
     Active Substance: ABACAVIR SULFATE\LAMIVUDINE
     Indication: PRODUCT USED FOR UNKNOWN INDICATION
     Route: 048

REACTIONS (6)
  - Lethargy [None]
  - Epilepsy [None]
  - Mobility decreased [None]
  - Malaise [None]
  - Hypersomnia [None]
  - Adverse event [None]
